FAERS Safety Report 5056614-1 (Version None)
Quarter: 2006Q2

REPORT INFORMATION
  Report Type: 
  Country: None (occurrence: None)
  Receive Date: 20060616
  Receipt Date: 20060330
  Transmission Date: 20061013
  Serious: No
  Sender: FDA-Public Use
  Company Number: 2006US000729

PATIENT
  Age: 75 Year
  Sex: Female

DRUGS (6)
  1. VESICARE [Suspect]
     Indication: HYPERTONIC BLADDER
     Dosage: 5 MG, UID/QD, ORAL
     Route: 048
     Dates: start: 20060320
  2. OXYTROL [Concomitant]
  3. OXYCODONE (OXYCODONE) [Concomitant]
  4. GLUTACID (GLUTAMIC ACID HYDROCHLORIDE) [Concomitant]
  5. ZETIA [Concomitant]
  6. BENAZEPRIL (BENAZEPRIL) [Concomitant]

REACTIONS (1)
  - DRUG INEFFECTIVE [None]
